FAERS Safety Report 12163302 (Version 1)
Quarter: 2016Q1

REPORT INFORMATION
  Report Type: Spontaneous
  Country: US (occurrence: US)
  Receive Date: 20160309
  Receipt Date: 20160309
  Transmission Date: 20160526
  Serious: No
  Sender: FDA-Public Use
  Company Number: US-ROCHE-1564183

PATIENT
  Sex: Male

DRUGS (1)
  1. XOLAIR [Suspect]
     Active Substance: OMALIZUMAB
     Indication: CHRONIC SPONTANEOUS URTICARIA
     Route: 065
     Dates: start: 20150223

REACTIONS (5)
  - Feeling abnormal [Recovering/Resolving]
  - Dysphagia [Unknown]
  - Blood pressure increased [Unknown]
  - Headache [Unknown]
  - Swelling face [Unknown]
